FAERS Safety Report 13622850 (Version 1)
Quarter: 2017Q2

REPORT INFORMATION
  Report Type: Spontaneous
  Country: IT (occurrence: IT)
  Receive Date: 20170607
  Receipt Date: 20170607
  Transmission Date: 20170830
  Serious: Yes (Other)
  Sender: FDA-Public Use
  Company Number: PHHY2017IT080192

PATIENT
  Age: 7 Year
  Sex: Male
  Weight: 31 kg

DRUGS (1)
  1. CITALOPRAM [Suspect]
     Active Substance: CITALOPRAM HYDROBROMIDE
     Indication: RHINITIS ALLERGIC
     Dosage: 8 DRP, QD
     Route: 048
     Dates: start: 20170511, end: 20170525

REACTIONS (5)
  - Tremor [Recovered/Resolved]
  - Drug use disorder [Unknown]
  - Abdominal pain [Recovered/Resolved]
  - Dyssomnia [Recovered/Resolved]
  - Drug dispensing error [Unknown]

NARRATIVE: CASE EVENT DATE: 20170525
